FAERS Safety Report 7757211-7 (Version None)
Quarter: 2011Q3

REPORT INFORMATION
  Report Type: 
  Country: None (occurrence: None)
  Receive Date: 20110916
  Receipt Date: 20110909
  Transmission Date: 20111222
  Serious: Yes (Hospitalization)
  Sender: FDA-Public Use
  Company Number: PH-B.I. PHARMACEUTICALS,INC./RIDGEFIELD-2011-CS-00808RP

PATIENT
  Age: 43 Year
  Sex: Female

DRUGS (3)
  1. CLOPIDOGREL [Concomitant]
     Dosage: 75 MG
     Route: 048
  2. NEO-MERCAZOLE TAB [Concomitant]
     Indication: HYPERTHYROIDISM
     Route: 048
  3. PRADAXA [Suspect]
     Indication: CEREBROVASCULAR ACCIDENT PROPHYLAXIS
     Dosage: 150 MG
     Route: 048
     Dates: start: 20110814, end: 20110814

REACTIONS (5)
  - PRURITUS [None]
  - RASH [None]
  - TACHYCARDIA [None]
  - SWELLING FACE [None]
  - HYPERSENSITIVITY [None]
